FAERS Safety Report 18365083 (Version 1)
Quarter: 2020Q4

REPORT INFORMATION
  Report Type: Spontaneous
  Country: US (occurrence: US)
  Receive Date: 20201009
  Receipt Date: 20201009
  Transmission Date: 20210114
  Serious: Yes (Other)
  Sender: FDA-Public Use
  Company Number: US-CADILA HEALTHCARE LIMITED-US-ZYDUS-056547

PATIENT

DRUGS (9)
  1. OLANZAPINE. [Interacting]
     Active Substance: OLANZAPINE
     Dosage: 25 MILLIGRAM
     Route: 065
  2. LITHIUM. [Interacting]
     Active Substance: LITHIUM
     Dosage: 1950 MILLIGRAM, QD
     Route: 065
  3. LITHIUM. [Interacting]
     Active Substance: LITHIUM
     Dosage: 1800 MILLIGRAM, QD
     Route: 065
  4. LITHIUM. [Interacting]
     Active Substance: LITHIUM
     Dosage: 1350 MILLIGRAM, QD
     Route: 065
  5. LITHIUM. [Interacting]
     Active Substance: LITHIUM
     Dosage: 1500 MILLIGRAM, QD (FOR FOUR DAYS)
     Route: 065
  6. OLANZAPINE. [Interacting]
     Active Substance: OLANZAPINE
     Indication: AGITATION
     Dosage: UNK (TOTAL DAILY DOSE ?40MG)
     Route: 065
  7. OLANZAPINE. [Suspect]
     Active Substance: OLANZAPINE
     Indication: MANIA
     Dosage: UNK, PRN
     Route: 048
  8. OLANZAPINE. [Interacting]
     Active Substance: OLANZAPINE
     Dosage: UNK (TITRATED TO MORNING DOSE OF 10MG AND EVENING DOSE OF 20MG)
  9. LITHIUM. [Interacting]
     Active Substance: LITHIUM
     Indication: MANIA
     Dosage: 300 MILLIGRAM, BID
     Route: 048

REACTIONS (2)
  - Oedema [Recovered/Resolved]
  - Drug interaction [Recovered/Resolved]
